FAERS Safety Report 9817721 (Version 1)
Quarter: 2014Q1

REPORT INFORMATION
  Report Type: Spontaneous
  Country: US (occurrence: None)
  Receive Date: 20140110
  Receipt Date: 20140110
  Transmission Date: 20141002
  Serious: Yes (Hospitalization)
  Sender: FDA-Public Use
  Company Number: None

PATIENT
  Age: 63 Year
  Sex: Male
  Weight: 66.9 kg

DRUGS (1)
  1. BACLOFEN [Suspect]
     Indication: WITHDRAWAL SYNDROME
     Route: 048
     Dates: start: 20080226, end: 20130828

REACTIONS (15)
  - Muscle spasticity [None]
  - Activities of daily living impaired [None]
  - Pyrexia [None]
  - Myalgia [None]
  - Muscle rigidity [None]
  - Rhabdomyolysis [None]
  - Mental status changes [None]
  - Renal failure acute [None]
  - Hallucination [None]
  - Faecal incontinence [None]
  - Urinary incontinence [None]
  - Cognitive disorder [None]
  - Abnormal behaviour [None]
  - Hallucination, visual [None]
  - Confusional state [None]
